FAERS Safety Report 6877825-6 (Version None)
Quarter: 2010Q3

REPORT INFORMATION
  Report Type: 
  Country: None (occurrence: None)
  Receive Date: 20100727
  Receipt Date: 20070712
  Transmission Date: 20110219
  Serious: Yes (Other)
  Sender: FDA-Public Use
  Company Number: US-PFIZER INC-2007044744

PATIENT
  Sex: Female
  Weight: 54.4 kg

DRUGS (2)
  1. CELEBREX [Suspect]
     Indication: HEADACHE
     Route: 048
     Dates: start: 19890101, end: 20050518
  2. CELEBREX [Suspect]
     Indication: ARTHRITIS

REACTIONS (1)
  - CEREBROVASCULAR ACCIDENT [None]
